FAERS Safety Report 4281897-5 (Version None)
Quarter: 2004Q1

REPORT INFORMATION
  Report Type: 
  Country: None (occurrence: None)
  Receive Date: 20040112
  Receipt Date: 20031027
  Transmission Date: 20041129
  Serious: No
  Sender: FDA-Public Use
  Company Number: PHEH2003US09893

PATIENT
  Age: 2 Year
  Sex: Male

DRUGS (1)
  1. ELIDEL [Suspect]
     Indication: DRY SKIN
     Dosage: QD, TOPICAL
     Route: 061
     Dates: start: 20030201

REACTIONS (5)
  - DRUG INEFFECTIVE [None]
  - RASH PAPULAR [None]
  - SKIN INFECTION [None]
  - SWELLING [None]
  - WOUND SECRETION [None]
